FAERS Safety Report 6383826-7 (Version None)
Quarter: 2009Q3

REPORT INFORMATION
  Report Type: 
  Country: None (occurrence: None)
  Receive Date: 20090929
  Receipt Date: 20090929
  Transmission Date: 20100115
  Serious: Yes (Other)
  Sender: FDA-Public Use
  Company Number: None

PATIENT
  Age: 26 Year
  Sex: Male
  Weight: 68 kg

DRUGS (4)
  1. DAPTOMYCIN [Suspect]
     Indication: STAPHYLOCOCCAL BACTERAEMIA
     Dosage: 500 MG  -1 GRAM FIRST DAY- DAILY IV DRIP
     Route: 041
     Dates: start: 20090803, end: 20090813
  2. LINEZOLID [Concomitant]
  3. XIGRIS [Concomitant]
  4. OTHERS [Concomitant]

REACTIONS (3)
  - EOSINOPHILIA [None]
  - LUNG INFILTRATION [None]
  - PNEUMONITIS [None]
